FAERS Safety Report 19257365 (Version 1)
Quarter: 2021Q2

REPORT INFORMATION
  Report Type: Spontaneous
  Country: US (occurrence: US)
  Receive Date: 20210513
  Receipt Date: 20210513
  Transmission Date: 20210717
  Serious: Yes (Other)
  Sender: FDA-Public Use
  Company Number: US-ASTRAZENECA-2021A267388

PATIENT
  Age: 63 Year
  Sex: Male
  Weight: 89.8 kg

DRUGS (1)
  1. BYDUREON [Suspect]
     Active Substance: EXENATIDE
     Indication: DIABETES MELLITUS
     Route: 065
     Dates: start: 20210301

REACTIONS (3)
  - Type 1 diabetes mellitus [Recovered/Resolved with Sequelae]
  - Device issue [Unknown]
  - Wrong technique in device usage process [Unknown]
